FAERS Safety Report 4555803-X (Version None)
Quarter: 2005Q1

REPORT INFORMATION
  Report Type: 
  Country: None (occurrence: None)
  Receive Date: 20050112
  Receipt Date: 20040820
  Transmission Date: 20050727
  Serious: Yes (Hospitalization)
  Sender: FDA-Public Use
  Company Number: 200420258BWH

PATIENT
  Age: 61 Year
  Sex: Male
  Weight: 115.6672 kg

DRUGS (8)
  1. CIPROFLOXACIN HYDROCHLORIDE [Suspect]
     Indication: PROPHYLAXIS
     Dosage: 500 MG, ONCE, ORAL
     Route: 048
     Dates: start: 20040819
  2. PREDNISONE [Concomitant]
  3. ALLEGRA [Concomitant]
  4. FOSAMAX [Concomitant]
  5. FLONASE [Concomitant]
  6. ADVAIR DISKUS 100/50 [Concomitant]
  7. LUPRON [Concomitant]
  8. SERZONE [Concomitant]

REACTIONS (3)
  - CHEST PAIN [None]
  - DYSPNOEA [None]
  - PULMONARY EMBOLISM [None]
